FAERS Safety Report 6604489-9 (Version None)
Quarter: 2010Q1

REPORT INFORMATION
  Report Type: 
  Country: None (occurrence: None)
  Receive Date: 20100226
  Receipt Date: 20091027
  Transmission Date: 20100710
  Serious: No
  Sender: FDA-Public Use
  Company Number: A0813868A

PATIENT
  Sex: Female

DRUGS (5)
  1. LAMICTAL CD [Suspect]
     Dosage: 600MG PER DAY
     Route: 048
  2. ADDERALL 30 [Concomitant]
  3. ATIVAN [Concomitant]
  4. TRAZODONE HCL [Concomitant]
  5. CYMBALTA [Concomitant]

REACTIONS (2)
  - AFFECT LABILITY [None]
  - DRUG INEFFECTIVE [None]
